FAERS Safety Report 10282688 (Version 1)
Quarter: 2014Q3

REPORT INFORMATION
  Report Type: Spontaneous
  Country: GB (occurrence: GB)
  Receive Date: 20140707
  Receipt Date: 20140707
  Transmission Date: 20150326
  Serious: Yes (Other)
  Sender: FDA-Public Use
  Company Number: PHHY2014GB080132

PATIENT
  Age: 83 Year
  Sex: Male

DRUGS (12)
  1. TICAGRELOR [Concomitant]
     Active Substance: TICAGRELOR
     Dosage: UNK UKN, UNK
  2. TEICOPLANIN [Concomitant]
     Active Substance: TEICOPLANIN
  3. AZTREONAM. [Concomitant]
     Active Substance: AZTREONAM
  4. METRONIDAZOLE. [Suspect]
     Active Substance: METRONIDAZOLE
     Indication: PNEUMONIA
     Dosage: 500 MG, TID
     Route: 042
     Dates: start: 20140613
  5. BISOPROLOL [Concomitant]
     Active Substance: BISOPROLOL
  6. PRAVASTATIN [Concomitant]
     Active Substance: PRAVASTATIN\PRAVASTATIN SODIUM
  7. RAMIPRIL. [Concomitant]
     Active Substance: RAMIPRIL
  8. ENOXAPARIN [Concomitant]
     Active Substance: ENOXAPARIN
  9. FINASTERIDE. [Concomitant]
     Active Substance: FINASTERIDE
  10. ASPIRIN. [Concomitant]
     Active Substance: ASPIRIN
  11. TAZOCIN [Concomitant]
     Active Substance: PIPERACILLIN SODIUM\TAZOBACTAM SODIUM
  12. OMEPRAZOLE. [Concomitant]
     Active Substance: OMEPRAZOLE

REACTIONS (5)
  - Chills [Recovered/Resolved]
  - Pyrexia [Recovered/Resolved]
  - Injection site discomfort [Recovered/Resolved]
  - Dyspnoea [Recovered/Resolved]
  - Anxiety [Unknown]

NARRATIVE: CASE EVENT DATE: 20140614
